FAERS Safety Report 6760648-6 (Version None)
Quarter: 2010Q2

REPORT INFORMATION
  Report Type: 
  Country: None (occurrence: None)
  Receive Date: 20100608
  Receipt Date: 20100526
  Transmission Date: 20101027
  Serious: Yes (Hospitalization, Other)
  Sender: FDA-Public Use
  Company Number: BE-PFIZER INC-2010058274

PATIENT
  Age: 88 Year
  Sex: Male
  Weight: 67 kg

DRUGS (11)
  1. TOVIAZ [Suspect]
     Indication: MICTURITION URGENCY
     Dosage: 4 MG, 1X/DAY
     Route: 048
     Dates: start: 20100429, end: 20100504
  2. TOVIAZ [Suspect]
     Indication: BLADDER DISORDER
  3. PROLOPA [Concomitant]
     Indication: PARKINSON'S DISEASE
     Dosage: UNK MG, 1X/DAY
  4. PANTOPRAZOLE [Concomitant]
     Dosage: UNK
  5. CARDIOASPIRINE [Concomitant]
     Dosage: UNK
     Route: 048
  6. SECTRAL [Concomitant]
     Dosage: 400 MG, 1X/DAY
     Route: 048
  7. NULYTELY [Concomitant]
     Indication: CONSTIPATION
     Dosage: UNK
     Route: 048
     Dates: start: 20100426
  8. OMIC [Concomitant]
     Indication: PROSTATISM
     Dosage: UNK
     Route: 048
     Dates: start: 20100426
  9. MACROGOL [Concomitant]
     Dosage: UNK
  10. POTASSIUM CHLORIDE [Concomitant]
     Dosage: UNK
  11. SODIUM BICARBONATE [Concomitant]
     Dosage: UNK

REACTIONS (1)
  - CONFUSIONAL STATE [None]
